FAERS Safety Report 8023453-9 (Version None)
Quarter: 2012Q1

REPORT INFORMATION
  Report Type: 
  Country: None (occurrence: None)
  Receive Date: 20120105
  Receipt Date: 20111230
  Transmission Date: 20120608
  Serious: Yes (Hospitalization)
  Sender: FDA-Public Use
  Company Number: US-BIOGENIDEC-2012BI000080

PATIENT
  Age: 39 Year
  Sex: Female

DRUGS (2)
  1. YAZ [Concomitant]
     Indication: CONTRACEPTION
  2. TYSABRI [Suspect]
     Indication: MULTIPLE SCLEROSIS
     Route: 042
     Dates: start: 20071030

REACTIONS (2)
  - PULMONARY EMBOLISM [None]
  - HEADACHE [None]
